FAERS Safety Report 13911132 (Version 1)
Quarter: 2017Q3

REPORT INFORMATION
  Report Type: Spontaneous
  Country: US (occurrence: None)
  Receive Date: 20170828
  Receipt Date: 20170828
  Transmission Date: 20171127
  Serious: No
  Sender: FDA-Public Use
  Company Number: None

PATIENT

DRUGS (4)
  1. DEXMOAMPHETAMINE 10 MLG [Suspect]
     Active Substance: DEXTROAMPHETAMINE
  2. WELLBUTRIN [Suspect]
     Active Substance: BUPROPION HYDROCHLORIDE
  3. RISPERDAL [Suspect]
     Active Substance: RISPERIDONE
  4. ZYPREXA [Suspect]
     Active Substance: OLANZAPINE

REACTIONS (2)
  - Unevaluable event [None]
  - Hospitalisation [None]
